FAERS Safety Report 5200961-7 (Version None)
Quarter: 2007Q1

REPORT INFORMATION
  Report Type: 
  Country: None (occurrence: None)
  Receive Date: 20070108
  Receipt Date: 20061228
  Transmission Date: 20070707
  Serious: Yes (Hospitalization)
  Sender: FDA-Public Use
  Company Number: JP-BAYER-200611291BYL

PATIENT
  Age: 58 Year
  Sex: Female
  Weight: 54 kg

DRUGS (3)
  1. AVELOX [Suspect]
     Indication: PNEUMONIA
     Route: 048
     Dates: start: 20061030, end: 20061103
  2. ZITHROMAC [Suspect]
     Indication: PNEUMONIA
     Route: 048
     Dates: start: 20061026, end: 20061028
  3. DIOVAN [Suspect]
     Indication: HYPERTENSION
     Dosage: TOTAL DAILY DOSE: 80 MG
     Route: 048

REACTIONS (1)
  - CRYPTOGENIC ORGANISING PNEUMONIA [None]
